FAERS Safety Report 5706348-2 (Version None)
Quarter: 2008Q2

REPORT INFORMATION
  Report Type: 
  Country: None (occurrence: None)
  Receive Date: 20080409
  Receipt Date: 20080208
  Transmission Date: 20081010
  Serious: Yes (Life-Threatening, Hospitalization)
  Sender: FDA-Public Use
  Company Number: 08-186

PATIENT
  Sex: Male
  Weight: 174.6349 kg

DRUGS (12)
  1. FAZACLO ODT [Suspect]
     Indication: SCHIZOAFFECTIVE DISORDER
     Dosage: 300 MG PO DAILY
     Route: 048
     Dates: start: 20080126, end: 20080208
  2. ABILIFY [Concomitant]
  3. DEPAKOTE [Concomitant]
  4. TOPROL-XL [Concomitant]
  5. CYMBALTA [Concomitant]
  6. ACTAL [Concomitant]
  7. ZOCOR [Concomitant]
  8. AVINZA [Concomitant]
  9. TRAZODONE HCL [Concomitant]
  10. VICODIN [Concomitant]
  11. MOM [Concomitant]
  12. NICORETTE [Concomitant]

REACTIONS (2)
  - PNEUMONIA ASPIRATION [None]
  - RESPIRATORY FAILURE [None]
